FAERS Safety Report 23954163 (Version 1)
Quarter: 2024Q2

REPORT INFORMATION
  Report Type: Spontaneous
  Country: US (occurrence: US)
  Receive Date: 20240609
  Receipt Date: 20240609
  Transmission Date: 20240715
  Serious: Yes (Hospitalization)
  Sender: FDA-Public Use
  Company Number: US-JNJFOC-20240605317

PATIENT
  Sex: Female

DRUGS (3)
  1. OPSUMIT [Suspect]
     Active Substance: MACITENTAN
     Indication: Product used for unknown indication
     Route: 048
     Dates: start: 20231122
  2. ROSUVASTATIN [Concomitant]
     Active Substance: ROSUVASTATIN
  3. WEGOVY [Concomitant]
     Active Substance: SEMAGLUTIDE

REACTIONS (1)
  - Gastrooesophageal reflux disease [Unknown]
